FAERS Safety Report 24363279 (Version 1)
Quarter: 2024Q3

REPORT INFORMATION
  Report Type: Report from Study
  Country: IT (occurrence: IT)
  Receive Date: 20240925
  Receipt Date: 20240925
  Transmission Date: 20241017
  Serious: Yes (Other)
  Sender: TEVA
  Company Number: None

PATIENT
  Age: 78 Year
  Sex: Female
  Weight: 60 kg

DRUGS (2)
  1. PACLITAXEL [Suspect]
     Active Substance: PACLITAXEL
     Indication: Adenocarcinoma gastric
     Dosage: PACLITAXEL 80 MG/M2 ON DAYS 1, 8 AND 15, PACLITAXEL TEVA
     Route: 042
     Dates: start: 20240229
  2. CYRAMZA [Suspect]
     Active Substance: RAMUCIRUMAB
     Indication: Adenocarcinoma gastric
     Dosage: RAMUCIRUMAB ADMINISTERED AT A DOSE OF 8 MG/KG ON DAY 1 AND DAY 15
     Route: 042
     Dates: start: 20240229

REACTIONS (1)
  - Neutropenia [Recovering/Resolving]

NARRATIVE: CASE EVENT DATE: 20240724
